FAERS Safety Report 5767200-X (Version None)
Quarter: 2008Q2

REPORT INFORMATION
  Report Type: 
  Country: None (occurrence: None)
  Receive Date: 20080612
  Receipt Date: 20080602
  Transmission Date: 20081010
  Serious: Yes (Other)
  Sender: FDA-Public Use
  Company Number: BR-JNJFOC-20080505344

PATIENT
  Sex: Male

DRUGS (3)
  1. REMICADE [Suspect]
     Dosage: FIFTH DOSE
     Route: 042
  2. REMICADE [Suspect]
     Route: 042
  3. REMICADE [Suspect]
     Indication: PSORIASIS
     Dosage: DOSES ONE THROUGH 4
     Route: 042

REACTIONS (5)
  - ARTHRALGIA [None]
  - DIABETES MELLITUS [None]
  - INFUSION RELATED REACTION [None]
  - PSORIATIC ARTHROPATHY [None]
  - PYREXIA [None]
